FAERS Safety Report 6624209-1 (Version None)
Quarter: 2010Q1

REPORT INFORMATION
  Report Type: 
  Country: None (occurrence: None)
  Receive Date: 20100310
  Receipt Date: 20091030
  Transmission Date: 20100710
  Serious: No
  Sender: FDA-Public Use
  Company Number: US-BIOGENIDEC-2009BI035211

PATIENT
  Age: 34 Year
  Sex: Male

DRUGS (3)
  1. AVONEX [Suspect]
     Indication: MULTIPLE SCLEROSIS
     Route: 030
     Dates: start: 20080601
  2. PROVIGIL [Concomitant]
     Indication: FATIGUE
     Dates: start: 19940101
  3. GABAPENTIN [Concomitant]
     Indication: MUSCLE SPASMS
     Dates: start: 19940101

REACTIONS (7)
  - FATIGUE [None]
  - INFLUENZA LIKE ILLNESS [None]
  - INSOMNIA [None]
  - LIGAMENT RUPTURE [None]
  - LIVER DISORDER [None]
  - LOSS OF CONSCIOUSNESS [None]
  - ROTATOR CUFF SYNDROME [None]
